FAERS Safety Report 25405022 (Version 1)
Quarter: 2025Q2

REPORT INFORMATION
  Report Type: Spontaneous
  Country: IE (occurrence: IE)
  Receive Date: 20250606
  Receipt Date: 20250606
  Transmission Date: 20250717
  Serious: Yes (Hospitalization, Other)
  Sender: RANBAXY
  Company Number: IE-SUN PHARMACEUTICAL INDUSTRIES LTD-2025R1-509928

PATIENT
  Age: 60 Year
  Sex: Male

DRUGS (1)
  1. FUROSEMIDE [Suspect]
     Active Substance: FUROSEMIDE
     Indication: Ejection fraction
     Dosage: 40 MILLIGRAM, DAILY
     Route: 065

REACTIONS (2)
  - Condition aggravated [Unknown]
  - Pulmonary hypertension [Unknown]
